FAERS Safety Report 6716303-1 (Version None)
Quarter: 2010Q2

REPORT INFORMATION
  Report Type: 
  Country: None (occurrence: None)
  Receive Date: 20100507
  Receipt Date: 20100423
  Transmission Date: 20101027
  Serious: Yes (Other)
  Sender: FDA-Public Use
  Company Number: PHHY2010JP26337

PATIENT
  Age: 75 Year
  Sex: Male

DRUGS (3)
  1. ZOMETA [Suspect]
     Indication: MULTIPLE MYELOMA
     Dosage: 4MG DAILY
     Route: 042
     Dates: start: 20060512, end: 20081015
  2. AREDIA [Suspect]
     Dosage: 45MG DALIY
     Route: 042
     Dates: start: 20050928, end: 20060426
  3. BENET [Suspect]
     Dosage: 2.5MG DAILY
     Route: 048
     Dates: start: 20050713, end: 20050824

REACTIONS (5)
  - IMPAIRED HEALING [None]
  - NASAL CONGESTION [None]
  - OSTEONECROSIS OF JAW [None]
  - SINUSITIS [None]
  - TOOTH EXTRACTION [None]
